FAERS Safety Report 11582916 (Version 1)
Quarter: 2015Q3

REPORT INFORMATION
  Report Type: Spontaneous
  Country: US (occurrence: None)
  Receive Date: 20150930
  Receipt Date: 20150930
  Transmission Date: 20151125
  Serious: Yes (Life-Threatening, Hospitalization)
  Sender: FDA-Public Use
  Company Number: None

PATIENT
  Age: 77 Year
  Sex: Male
  Weight: 106.6 kg

DRUGS (11)
  1. ALLOPURINOL. [Concomitant]
     Active Substance: ALLOPURINOL
  2. XARELTO [Concomitant]
     Active Substance: RIVAROXABAN
  3. TORSEMIDE. [Concomitant]
     Active Substance: TORSEMIDE
  4. XARELTO [Suspect]
     Active Substance: RIVAROXABAN
     Indication: HEART VALVE OPERATION
     Dosage: BY MOUTH, AT BEDTIME, EXCESSIVE NOSE BLEEDING, WOULD NOT STOP.?1 E/DAY
     Dates: start: 201506
  5. METOPROLOL [Concomitant]
     Active Substance: METOPROLOL
  6. TRAMADOL. [Concomitant]
     Active Substance: TRAMADOL
  7. XARELTO [Suspect]
     Active Substance: RIVAROXABAN
     Indication: ATRIAL FIBRILLATION
     Dosage: BY MOUTH, AT BEDTIME, EXCESSIVE NOSE BLEEDING, WOULD NOT STOP.?1 E/DAY
     Dates: start: 201506
  8. KLOR-CON [Concomitant]
     Active Substance: POTASSIUM CHLORIDE
  9. MORPHINE SULFATE. [Concomitant]
     Active Substance: MORPHINE SULFATE
  10. CENTRUM [Concomitant]
     Active Substance: VITAMINS
  11. ATORVASTATIN [Concomitant]
     Active Substance: ATORVASTATIN

REACTIONS (4)
  - Haemorrhoidal haemorrhage [None]
  - Epistaxis [None]
  - Constipation [None]
  - Abdominal discomfort [None]

NARRATIVE: CASE EVENT DATE: 20150829
